FAERS Safety Report 16097584 (Version 1)
Quarter: 2019Q1

REPORT INFORMATION
  Report Type: Spontaneous
  Country: US (occurrence: US)
  Receive Date: 20190320
  Receipt Date: 20190320
  Transmission Date: 20190418
  Serious: No
  Sender: FDA-Public Use
  Company Number: US-GLAXOSMITHKLINE-US2019049229

PATIENT
  Sex: Male

DRUGS (1)
  1. FLOVENT DISKUS [Suspect]
     Active Substance: FLUTICASONE PROPIONATE
     Indication: DYSPHAGIA
     Dosage: UNK
     Route: 048
     Dates: start: 2017

REACTIONS (2)
  - Product use in unapproved indication [Unknown]
  - Incorrect route of product administration [Unknown]
